FAERS Safety Report 4590708-X (Version None)
Quarter: 2005Q1

REPORT INFORMATION
  Report Type: 
  Country: None (occurrence: None)
  Receive Date: 20050224
  Receipt Date: 20050215
  Transmission Date: 20050727
  Serious: Yes (Hospitalization, Disabling)
  Sender: FDA-Public Use
  Company Number: US-MERCK-0502USA01986

PATIENT
  Age: 72 Year
  Sex: Male

DRUGS (4)
  1. PROSCAR [Suspect]
     Indication: BENIGN PROSTATIC HYPERPLASIA
     Route: 048
     Dates: start: 19960101, end: 20040201
  2. PROSCAR [Suspect]
     Route: 048
  3. MAXZIDE [Concomitant]
     Route: 065
  4. [THERAPY UNSPECIFIED] [Concomitant]
     Route: 065

REACTIONS (5)
  - BENIGN PROSTATIC HYPERPLASIA [None]
  - BREAST PAIN [None]
  - GYNAECOMASTIA [None]
  - RASH [None]
  - TESTICULAR SWELLING [None]
